FAERS Safety Report 5525216-2 (Version None)
Quarter: 2007Q4

REPORT INFORMATION
  Report Type: 
  Country: None (occurrence: None)
  Receive Date: 20071119
  Receipt Date: 20071119
  Transmission Date: 20080405
  Serious: Yes (Hospitalization)
  Sender: FDA-Public Use
  Company Number: None

PATIENT
  Age: 50 Year
  Sex: Female
  Weight: 68.0396 kg

DRUGS (1)
  1. GABAPENTIN [Suspect]
     Indication: HYPOAESTHESIA EYE
     Dosage: 300 MG 1 X A DAY
     Dates: start: 20071024, end: 20071110

REACTIONS (9)
  - ANXIETY [None]
  - CARDIAC DISORDER [None]
  - FACIAL PAIN [None]
  - FATIGUE [None]
  - FEELING ABNORMAL [None]
  - MALAISE [None]
  - MUSCLE SPASMS [None]
  - THINKING ABNORMAL [None]
  - TREMOR [None]
